FAERS Safety Report 9195727 (Version 1)
Quarter: 2013Q1

REPORT INFORMATION
  Report Type: Spontaneous
  Country: US (occurrence: None)
  Receive Date: 20120705
  Receipt Date: 20120705
  Transmission Date: 20140127
  Serious: Yes (Life-Threatening, Hospitalization)
  Sender: FDA-Public Use
  Company Number: US-CYPR-2012-000020

PATIENT
  Age: 70 Year
  Sex: Female

DRUGS (16)
  1. PRASUGREL [Suspect]
     Indication: ANTIPLATELET THERAPY
     Route: 048
     Dates: start: 20110514, end: 20120410
  2. ASPIRIN [Suspect]
     Route: 048
     Dates: start: 20061207, end: 20120413
  3. PAXIL CR [Concomitant]
  4. OXYBUTYNIN [Concomitant]
  5. SYNTHROID [Concomitant]
  6. ANTARA [Concomitant]
  7. BENICAR [Concomitant]
  8. BYSTOLIC [Concomitant]
  9. LANSOPRAZOLE [Concomitant]
  10. OMACOR [Concomitant]
  11. NITROGLYCERIN [Concomitant]
  12. XANAX [Concomitant]
  13. HYZAAR [Concomitant]
  14. VALTREX [Concomitant]
  15. RHINOCORT [Concomitant]
  16. CYPHER STENT [Concomitant]

REACTIONS (2)
  - Haemorrhage intracranial [None]
  - Angina unstable [None]
